FAERS Safety Report 4637985-4 (Version None)
Quarter: 2005Q2

REPORT INFORMATION
  Report Type: 
  Country: None (occurrence: None)
  Receive Date: 20050415
  Receipt Date: 20050405
  Transmission Date: 20051028
  Serious: Yes (Death, Hospitalization)
  Sender: FDA-Public Use
  Company Number: HQWYE863807MAR05

PATIENT
  Age: 52 Year
  Sex: Male

DRUGS (11)
  1. RAPAMUNE [Suspect]
     Indication: IMMUNOSUPPRESSANT DRUG THERAPY
     Dosage: 4 MG 1X PER 1 DAY
     Route: 048
     Dates: start: 20050128, end: 20050226
  2. TACROLIMUS                 (TACROLIMUS) [Concomitant]
  3. MEPREDNISONE               (MEPREDNISONE) [Concomitant]
  4. CARVEDILOL [Concomitant]
  5. ATORVASTATIN CALCIUM [Concomitant]
  6. CLOFIBRATE [Concomitant]
  7. THYMOGLOBULIN [Concomitant]
  8. SULFAMETHOXAZOLE + TRIMETHOPRIM [Concomitant]
  9. OMEPRAZOLE [Concomitant]
  10. NISTATIN      (NYSTATIN) [Concomitant]
  11. GEMFIBROZIL [Concomitant]

REACTIONS (14)
  - ANAEMIA [None]
  - ANOREXIA [None]
  - ASTHENIA [None]
  - BLOOD PRESSURE SYSTOLIC DECREASED [None]
  - CARDIAC ARREST [None]
  - CARDIOMEGALY [None]
  - CYTOMEGALOVIRUS ANTIGEN POSITIVE [None]
  - DEPRESSION [None]
  - EPISTAXIS [None]
  - LUNG INFILTRATION [None]
  - METABOLIC ACIDOSIS [None]
  - PULMONARY HAEMORRHAGE [None]
  - TRICUSPID VALVE INCOMPETENCE [None]
  - VENTRICULAR FIBRILLATION [None]
